FAERS Safety Report 7481376-8 (Version None)
Quarter: 2011Q2

REPORT INFORMATION
  Report Type: 
  Country: None (occurrence: None)
  Receive Date: 20110516
  Receipt Date: 20110426
  Transmission Date: 20111010
  Serious: No
  Sender: FDA-Public Use
  Company Number: US-B.I. PHARMACEUTICALS,INC./RIDGEFIELD-2011-BP-06729BP

PATIENT
  Sex: Female

DRUGS (11)
  1. CLONIDINE [Concomitant]
     Indication: CARDIAC DISORDER
     Dosage: 0.6 MG
  2. GABAPENTIN [Concomitant]
     Indication: PAIN IN EXTREMITY
     Dosage: 300 MG
     Dates: start: 20100101
  3. SYNTHROID [Concomitant]
     Indication: HYPOTHYROIDISM
     Dosage: 75 MCG
  4. METOPROLOL SUCCINATE [Concomitant]
     Indication: HYPERTENSION
     Dosage: 50 MG
  5. DILTIAZEM [Concomitant]
     Indication: CARDIAC DISORDER
     Dosage: 360 MG
  6. PRADAXA [Suspect]
     Indication: ATRIAL FIBRILLATION
     Dosage: 150 MG
     Route: 048
     Dates: start: 20110218
  7. DIOVAN [Concomitant]
     Indication: CARDIAC DISORDER
  8. PRADAXA [Suspect]
     Dosage: 150 MG
     Route: 048
     Dates: start: 20110301
  9. DIOVAN [Concomitant]
     Indication: HYPERTENSION
     Dosage: 80 MG
  10. GABAPENTIN [Concomitant]
     Indication: HYPOAESTHESIA
  11. ASPIRIN [Concomitant]
     Indication: CEREBROVASCULAR ACCIDENT PROPHYLAXIS
     Dosage: 81 MG

REACTIONS (3)
  - DRY MOUTH [None]
  - THIRST [None]
  - DYSURIA [None]
